FAERS Safety Report 11326897 (Version 1)
Quarter: 2015Q3

REPORT INFORMATION
  Report Type: Spontaneous
  Country: IT (occurrence: IT)
  Receive Date: 20150731
  Receipt Date: 20150731
  Transmission Date: 20151125
  Serious: Yes (Other)
  Sender: FDA-Public Use
  Company Number: IT-ACTAVIS-2015-15869

PATIENT
  Age: 63 Year
  Sex: Female

DRUGS (4)
  1. FLUOROURACIL. [Suspect]
     Active Substance: FLUOROURACIL
     Dosage: 3880 MG, CYCLICAL
     Route: 041
     Dates: start: 20150622, end: 20150720
  2. IRINOTECAN (UNKNOWN) [Suspect]
     Active Substance: IRINOTECAN
     Indication: PANCREATIC CARCINOMA
     Dosage: 291 MG, CYCLICAL
     Route: 042
     Dates: start: 20150622, end: 20150720
  3. FLUOROURACIL. [Suspect]
     Active Substance: FLUOROURACIL
     Indication: PANCREATIC CARCINOMA
     Dosage: 648 MG, CYCLICAL
     Route: 040
     Dates: start: 20150622, end: 20150720
  4. OXALIPLATINO SUN [Suspect]
     Active Substance: OXALIPLATIN
     Indication: PANCREATIC CARCINOMA
     Dosage: 137 MG, CYCLICAL
     Route: 042
     Dates: start: 20150622, end: 20150720

REACTIONS (1)
  - Neutropenia [Recovered/Resolved]

NARRATIVE: CASE EVENT DATE: 20150717
